FAERS Safety Report 21924055 (Version 2)
Quarter: 2025Q1

REPORT INFORMATION
  Report Type: Spontaneous
  Country: US (occurrence: US)
  Receive Date: 20230130
  Receipt Date: 20250227
  Transmission Date: 20250409
  Serious: No
  Sender: UCB
  Company Number: US-UCBSA-2022005874

PATIENT
  Age: 14 Year

DRUGS (2)
  1. KEPPRA [Suspect]
     Active Substance: LEVETIRACETAM
     Indication: Encephalopathy
  2. PREDNISOLONE [Concomitant]
     Active Substance: PREDNISOLONE
     Indication: Encephalopathy

REACTIONS (1)
  - Product use in unapproved indication [Unknown]
